FAERS Safety Report 17284470 (Version 2)
Quarter: 2020Q1

REPORT INFORMATION
  Report Type: Spontaneous
  Country: MY (occurrence: RU)
  Receive Date: 20200117
  Receipt Date: 20200123
  Transmission Date: 20200409
  Serious: Yes (Hospitalization, Congenital Anomaly)
  Sender: FDA-Public Use
  Company Number: MY-ABBVIE-20K-101-3237998-00

PATIENT
  Sex: Female

DRUGS (1)
  1. VALPROIC ACID. [Suspect]
     Active Substance: VALPROIC ACID
     Indication: MATERNAL EXPOSURE TIMING UNSPECIFIED
     Route: 064

REACTIONS (17)
  - Foetal exposure during pregnancy [Unknown]
  - Psychomotor skills impaired [Unknown]
  - Cardiac murmur [Unknown]
  - Congenital pulmonary hypertension [Unknown]
  - Myotonia congenita [Unknown]
  - Congenital oral malformation [Unknown]
  - Congenital nose malformation [Unknown]
  - Congenital cutis laxa [Unknown]
  - Pectus excavatum [Unknown]
  - Low set ears [Unknown]
  - Congenital hand malformation [Unknown]
  - Congenital eyelid malformation [Unknown]
  - Foetal anticonvulsant syndrome [Unknown]
  - Malnutrition [Unknown]
  - Dysmorphism [Unknown]
  - Congenital foot malformation [Unknown]
  - Persistent left superior vena cava [Unknown]
